FAERS Safety Report 17888472 (Version 1)
Quarter: 2020Q2

REPORT INFORMATION
  Report Type: Spontaneous
  Country: DE (occurrence: DE)
  Receive Date: 20200612
  Receipt Date: 20200612
  Transmission Date: 20200714
  Serious: Yes (Hospitalization)
  Sender: FDA-Public Use
  Company Number: DE-TEVA-2020-DE-1247530

PATIENT
  Age: 61 Year
  Sex: Male
  Weight: 72 kg

DRUGS (11)
  1. AMITRIPTYLIN [Concomitant]
     Active Substance: AMITRIPTYLINE
     Dosage: 10 MG
  2. PREGABALIN. [Concomitant]
     Active Substance: PREGABALIN
     Dosage: 300 MILLIGRAM DAILY; 150 MG, 2-0-0-0
  3. CALCIUMCARBONAT/COLECALCIFEROL (VITAMIN D) [Concomitant]
     Dosage: 2 DOSAGE FORMS DAILY; 1250 | 400 MG / IU, 1-0-1-0
  4. SPIOLTO RESPIMAT 2,5 MIKROGRAMM/2,5 MIKROGRAMM [Concomitant]
     Dosage: 1 DOSAGE FORMS DAILY; 2.5|2.5 MCG, 1-0-0-0
  5. ONDANSETRON [Concomitant]
     Active Substance: ONDANSETRON
     Dosage: 8 MG, 2X 1 IF REQUIRED,
  6. NALOXON/TILIDIN [Concomitant]
     Dosage: 2 DOSAGE FORMS DAILY; 8|100 MG, 1-0-0-1
  7. DOCETAXEL. [Suspect]
     Active Substance: DOCETAXEL
     Dosage: 140 MG, ACCORDING TO THE SCHEME
  8. MIRTAZAPIN [Concomitant]
     Active Substance: MIRTAZAPINE
     Dosage: 7.5 MILLIGRAM DAILY; 15 MG, 0-0-0.5-0
  9. SILODOSIN. [Concomitant]
     Active Substance: SILODOSIN
     Dosage: 8 MILLIGRAM DAILY;  1-0-0-0
  10. PREDNISOLON [Suspect]
     Active Substance: PREDNISOLONE
     Dosage: 10 MILLIGRAM DAILY; 1-0-1-0
  11. ACETYLCYSTEIN [Concomitant]
     Active Substance: ACETYLCYSTEINE
     Dosage: 600 MILLIGRAM DAILY; 1-0-0-0

REACTIONS (4)
  - Productive cough [Unknown]
  - Cough [Unknown]
  - Pyrexia [Unknown]
  - General physical health deterioration [Unknown]
